FAERS Safety Report 16576204 (Version 1)
Quarter: 2019Q3

REPORT INFORMATION
  Report Type: Spontaneous
  Country: US (occurrence: US)
  Receive Date: 20190711
  Receipt Date: 20190711
  Transmission Date: 20191004
  Serious: No
  Sender: FDA-Public Use
  Company Number: None

PATIENT
  Age: 44 Year
  Sex: Male
  Weight: 185 kg

DRUGS (1)
  1. ANDRODERM [Suspect]
     Active Substance: TESTOSTERONE

REACTIONS (1)
  - Device adhesion issue [None]

NARRATIVE: CASE EVENT DATE: 20190627
